FAERS Safety Report 16197956 (Version 2)
Quarter: 2019Q4

REPORT INFORMATION
  Report Type: Spontaneous
  Country: US (occurrence: US)
  Receive Date: 20190415
  Receipt Date: 20191127
  Transmission Date: 20200122
  Serious: Yes (Hospitalization, Other)
  Sender: FDA-Public Use
  Company Number: US-SA-2019SA102118

PATIENT
  Age: 67 Year
  Sex: Male

DRUGS (3)
  1. GOCOVRI [Suspect]
     Active Substance: AMANTADINE
     Indication: DYSKINESIA
     Dosage: 274 MG, QD, BEDTIME
     Route: 048
     Dates: start: 20180920, end: 20181219
  2. GOCOVRI [Suspect]
     Active Substance: AMANTADINE
     Dosage: 137 MG, HS
     Route: 048
     Dates: start: 20181220
  3. AMBIEN [Suspect]
     Active Substance: ZOLPIDEM TARTRATE
     Dosage: 10 MG AND ANOTHER 10 MG ^LATER^
     Dates: start: 201903, end: 201903

REACTIONS (17)
  - Nephrolithiasis [Unknown]
  - Muscular weakness [Not Recovered/Not Resolved]
  - Gait disturbance [Recovered/Resolved]
  - Coronary artery disease [Not Recovered/Not Resolved]
  - Skin laceration [Recovering/Resolving]
  - Enuresis [Not Recovered/Not Resolved]
  - Coronary arterial stent insertion [Unknown]
  - Sleep talking [Recovering/Resolving]
  - Intentional dose omission [Unknown]
  - Hallucination, auditory [Recovered/Resolved]
  - Atrial fibrillation [Unknown]
  - Sluggishness [Unknown]
  - Psychomotor hyperactivity [Unknown]
  - Fall [Unknown]
  - Feeling abnormal [Unknown]
  - Confusional state [Recovering/Resolving]
  - Dizziness [Recovered/Resolved]

NARRATIVE: CASE EVENT DATE: 2018
